FAERS Safety Report 8461766-7 (Version None)
Quarter: 2012Q2

REPORT INFORMATION
  Report Type: 
  Country: None (occurrence: None)
  Receive Date: 20120625
  Receipt Date: 20120614
  Transmission Date: 20120825
  Serious: Yes (Other)
  Sender: FDA-Public Use
  Company Number: DK-JNJFOC-20120205091

PATIENT
  Sex: Female

DRUGS (16)
  1. REMICADE [Suspect]
     Indication: RHEUMATOID ARTHRITIS
     Route: 042
     Dates: start: 20020904
  2. CYCLOSPORINE [Concomitant]
     Dates: start: 20040513
  3. METHOTREXATE [Concomitant]
     Dates: start: 20040513
  4. CYCLOPHOSPHAMIDE [Concomitant]
     Dates: start: 20040513
  5. HUMIRA [Suspect]
     Indication: RHEUMATOID ARTHRITIS
     Route: 065
     Dates: start: 20040115
  6. HUMIRA [Suspect]
     Dosage: CONFLICTINGLY REPORTED AS DATE OF LAST ADMINSTARTION
     Route: 065
     Dates: start: 20100407
  7. IMURAN [Suspect]
     Indication: RHEUMATOID ARTHRITIS
     Route: 065
     Dates: start: 20011015
  8. IMURAN [Suspect]
     Route: 065
     Dates: start: 20100525
  9. MYOCRISIN [Concomitant]
     Dates: start: 20040513
  10. MABTHERA [Concomitant]
     Indication: RHEUMATOID ARTHRITIS
     Dates: start: 20091014
  11. LEFLUNOMIDE [Concomitant]
     Dates: start: 20040513
  12. REMICADE [Suspect]
     Route: 042
     Dates: start: 20011015
  13. HYDROXYCHLOROQUINE SULFATE [Concomitant]
     Dates: start: 20040513
  14. HUMIRA [Suspect]
     Route: 065
     Dates: start: 20100503
  15. PREDNISOLONE [Concomitant]
     Dates: start: 20011015
  16. SULFASALAZINE [Concomitant]
     Dates: start: 20040513

REACTIONS (1)
  - UTERINE CANCER [None]
